FAERS Safety Report 13449413 (Version 1)
Quarter: 2017Q2

REPORT INFORMATION
  Report Type: Spontaneous
  Country: CN (occurrence: CN)
  Receive Date: 20170417
  Receipt Date: 20170417
  Transmission Date: 20170830
  Serious: Yes (Other)
  Sender: FDA-Public Use
  Company Number: CN-PFIZER INC-2017165020

PATIENT
  Age: 73 Year
  Sex: Female

DRUGS (7)
  1. AMLODIPINE BESYLATE. [Concomitant]
     Active Substance: AMLODIPINE BESYLATE
     Indication: HYPERTENSION
     Dosage: 5 MG, 1X/DAY
     Route: 048
     Dates: start: 20150703, end: 20150711
  2. CITICOLINE SODIUM [Concomitant]
     Active Substance: CITICOLINE SODIUM
     Dosage: 0.2 G, 3X/DAY EVERY 8 HOURS
     Route: 048
     Dates: start: 20150703, end: 20150711
  3. ESTAZOLAM. [Concomitant]
     Active Substance: ESTAZOLAM
     Indication: DEPRESSION
     Dosage: 1 MG, 1X/DAY AT NIGHT
     Route: 048
     Dates: start: 20150703, end: 20150711
  4. SHUGANJIEYU [Interacting]
     Active Substance: HERBALS
     Dosage: 2 DF EVERY 12 HOURS
     Route: 048
     Dates: start: 20150703, end: 20150711
  5. METOPROLOL SUCCINATE. [Concomitant]
     Active Substance: METOPROLOL SUCCINATE
     Indication: HYPERTENSION
     Dosage: 47.5 MG, 1X/DAY
     Route: 048
     Dates: start: 20150703, end: 20150711
  6. CANDESARTAN CILEXETIL. [Concomitant]
     Active Substance: CANDESARTAN CILEXETIL
     Indication: HYPERTENSION
     Dosage: 8 MG, 1X/DAY
     Route: 048
     Dates: start: 20150703, end: 20150711
  7. VENLAFAXINE HCL [Suspect]
     Active Substance: VENLAFAXINE HYDROCHLORIDE
     Indication: DEPRESSION
     Dosage: 75 MG, 1X/DAY
     Route: 048
     Dates: start: 20150703, end: 20150711

REACTIONS (2)
  - Drug interaction [Recovered/Resolved]
  - Serotonin syndrome [Recovered/Resolved]

NARRATIVE: CASE EVENT DATE: 201507
